FAERS Safety Report 5905439-0 (Version None)
Quarter: 2008Q4

REPORT INFORMATION
  Report Type: 
  Country: None (occurrence: None)
  Receive Date: 20081001
  Receipt Date: 20081001
  Transmission Date: 20090506
  Serious: No
  Sender: FDA-Public Use
  Company Number: None

PATIENT
  Age: 41 Year
  Sex: Male
  Weight: 79.3795 kg

DRUGS (2)
  1. CIPROFLOXACIN HCL [Suspect]
     Indication: BACTERIAL INFECTION
     Dosage: 500MG 2/DAY PO
     Route: 048
     Dates: start: 20080623, end: 20080630
  2. CIPROFLOXACIN HCL [Suspect]
     Indication: INFECTION
     Dosage: 500MG 2/DAY PO
     Route: 048
     Dates: start: 20080623, end: 20080630

REACTIONS (2)
  - TENDON DISORDER [None]
  - TENDON PAIN [None]
